FAERS Safety Report 9162627 (Version 1)
Quarter: 2013Q1

REPORT INFORMATION
  Report Type: Spontaneous
  Country: US (occurrence: None)
  Receive Date: 20130206
  Receipt Date: 20130206
  Transmission Date: 20140127
  Serious: Yes (Hospitalization)
  Sender: FDA-Public Use
  Company Number: 2013-0167

PATIENT
  Age: 69 Year
  Sex: Male

DRUGS (2)
  1. KYPROLIS (CARFILZOMIB) (INJECTION FOR INFUSION) (CARFILZOMIB) [Suspect]
     Indication: PLASMA CELL MYELOMA
     Dosage: (2 IN 1 WK), IV
     Route: 042
     Dates: start: 20121106
  2. CYTOXAN (CYCLOPHOSPHAMIDE) (CYCLOPHOSPHAMIDE) [Concomitant]

REACTIONS (1)
  - Influenza [None]
